FAERS Safety Report 14642946 (Version 5)
Quarter: 2018Q3

REPORT INFORMATION
  Report Type: Spontaneous
  Country: US (occurrence: BR)
  Receive Date: 20180315
  Receipt Date: 20180726
  Transmission Date: 20181010
  Serious: Yes (Other)
  Sender: FDA-Public Use
  Company Number: US-SUNOVION-2018SUN000920

PATIENT
  Age: 69 Year
  Sex: Male
  Weight: 70 kg

DRUGS (14)
  1. OLCADIL [Suspect]
     Active Substance: CLOXAZOLAM
     Indication: STRESS
  2. OLCADIL [Suspect]
     Active Substance: CLOXAZOLAM
     Indication: HEADACHE
     Dosage: UNK;REGIMEN #2
  3. LORAX [Suspect]
     Active Substance: LORAZEPAM
     Indication: PRODUCT USED FOR UNKNOWN INDICATION
     Dosage: UNK
     Route: 065
  4. INDACATEROL AND GLYCOPYRROLATE [Suspect]
     Active Substance: GLYCOPYRROLATE\INDACATEROL MALEATE
     Indication: EMPHYSEMA
     Dosage: UNK UNK, QD (ONCE A NIGHT)
     Route: 055
  5. OLCADIL [Suspect]
     Active Substance: CLOXAZOLAM
     Indication: EMOTIONAL DISORDER
  6. LEXOTAN [Suspect]
     Active Substance: BROMAZEPAM
     Indication: PRODUCT USED FOR UNKNOWN INDICATION
     Dosage: UNK
     Route: 065
  7. OLCADIL [Suspect]
     Active Substance: CLOXAZOLAM
     Indication: STRESS
     Dosage: 1 DF (2 MG), QD HS (WHEN EPISODES GET OUT OF CONTROL HE USED 1 IN THE MORNING AND 1 IN THE EVENING)
     Route: 048
  8. OLCADIL [Suspect]
     Active Substance: CLOXAZOLAM
     Indication: EMOTIONAL DISORDER
     Dosage: UNK;REGIMEN #3
  9. FRONTAL [Suspect]
     Active Substance: ALPRAZOLAM
     Indication: PRODUCT USED FOR UNKNOWN INDICATION
     Dosage: UNK, REGIMEN #1
     Route: 065
  10. PANTOPRAZOLE [Concomitant]
     Active Substance: PANTOPRAZOLE
     Indication: GASTROOESOPHAGEAL REFLUX DISEASE
     Dosage: 1 DF, QD
     Route: 048
  11. OLCADIL [Suspect]
     Active Substance: CLOXAZOLAM
     Indication: HEADACHE
  12. SERETIDE [Suspect]
     Active Substance: FLUTICASONE PROPIONATE\SALMETEROL XINAFOATE
     Indication: EMPHYSEMA
     Dosage: UNK, REGIMEN #1
     Route: 065
  13. RIVOTRIL [Suspect]
     Active Substance: CLONAZEPAM
     Indication: PRODUCT USED FOR UNKNOWN INDICATION
     Dosage: UNK
     Route: 065
  14. BUSONID [Concomitant]
     Active Substance: BUDESONIDE
     Indication: NASAL POLYPS
     Dosage: 2 PFF IN EACH NOSTRIL BID
     Route: 055

REACTIONS (25)
  - Chest pain [Recovering/Resolving]
  - Product outer packaging issue [Unknown]
  - Emphysema [Not Recovered/Not Resolved]
  - Spinal cord compression [Recovering/Resolving]
  - Chronic gastritis [Unknown]
  - Intervertebral disc protrusion [Not Recovered/Not Resolved]
  - Tachycardia [Recovering/Resolving]
  - Migraine [Recovering/Resolving]
  - Aortic aneurysm [Not Recovered/Not Resolved]
  - Hypertension [Not Recovered/Not Resolved]
  - Emotional disorder [Not Recovered/Not Resolved]
  - Product physical issue [Unknown]
  - Lung disorder [Unknown]
  - Chronic obstructive pulmonary disease [Not Recovered/Not Resolved]
  - Arrhythmia [Unknown]
  - Influenza [Recovering/Resolving]
  - Drug ineffective [Unknown]
  - Mitral valve disease [Not Recovered/Not Resolved]
  - Depression [Recovering/Resolving]
  - Sedation [Recovering/Resolving]
  - Fatigue [Recovering/Resolving]
  - Asthma [Not Recovered/Not Resolved]
  - Chest discomfort [Recovering/Resolving]
  - Dyspnoea [Recovering/Resolving]
  - Rebound effect [Not Recovered/Not Resolved]

NARRATIVE: CASE EVENT DATE: 20180710
